FAERS Safety Report 9619847 (Version 14)
Quarter: 2015Q2

REPORT INFORMATION
  Report Type: Report from Study
  Country: US (occurrence: US)
  Receive Date: 20131014
  Receipt Date: 20150525
  Transmission Date: 20150821
  Serious: Yes (Congenital Anomaly)
  Sender: FDA-Public Use
  Company Number: US-ROCHE-1287969

PATIENT
  Age: 1 Day
  Sex: Female
  Weight: 5.78 kg

DRUGS (3)
  1. OMALIZUMAB [Suspect]
     Active Substance: OMALIZUMAB
     Route: 063
  2. POLY VI SOL [Concomitant]
  3. OMALIZUMAB [Suspect]
     Active Substance: OMALIZUMAB
     Indication: PRODUCT USED FOR UNKNOWN INDICATION
     Route: 064

REACTIONS (11)
  - Exposure during breast feeding [Unknown]
  - Congenital hydronephrosis [Recovered/Resolved]
  - Foetal exposure during pregnancy [Unknown]
  - Respiratory syncytial virus infection [Unknown]
  - Ear infection [Unknown]
  - Tachypnoea [Unknown]
  - Atrial septal defect [Recovered/Resolved]
  - Pleural effusion [Recovered/Resolved]
  - Ventricular septal defect [Recovered/Resolved]
  - Dermatitis diaper [Unknown]
  - Pulmonary oedema [Unknown]

NARRATIVE: CASE EVENT DATE: 20131006
